FAERS Safety Report 4975816-3 (Version None)
Quarter: 2006Q2

REPORT INFORMATION
  Report Type: 
  Country: None (occurrence: None)
  Receive Date: 20060411
  Receipt Date: 20060327
  Transmission Date: 20061013
  Serious: Yes (Hospitalization, Other)
  Sender: FDA-Public Use
  Company Number: 007007

PATIENT
  Age: 15 Year
  Sex: Male

DRUGS (2)
  1. CLARAVIS [Suspect]
     Indication: ACNE
     Dosage: SEE IMAGE
     Route: 048
     Dates: start: 20051010, end: 20060323
  2. CLARAVIS [Suspect]
     Indication: ACNE
     Dosage: SEE IMAGE
     Route: 048
     Dates: start: 20051010, end: 20060324

REACTIONS (3)
  - AGGRESSION [None]
  - DEPRESSION [None]
  - SUICIDAL IDEATION [None]
